FAERS Safety Report 7411288-7 (Version None)
Quarter: 2011Q2

REPORT INFORMATION
  Report Type: 
  Country: None (occurrence: None)
  Receive Date: 20110413
  Receipt Date: 20100526
  Transmission Date: 20111010
  Serious: Yes (Hospitalization, Other)
  Sender: FDA-Public Use
  Company Number: US-BRISTOL-MYERS SQUIBB COMPANY-15115439

PATIENT
  Sex: Male

DRUGS (4)
  1. ERBITUX [Suspect]
     Indication: HEAD AND NECK CANCER
     Dosage: GIVEN ON 25MAY10
     Route: 042
     Dates: start: 20100518, end: 20100525
  2. BENADRYL [Concomitant]
     Indication: PREMEDICATION
     Route: 042
  3. DECADRON [Concomitant]
     Indication: PREMEDICATION
     Route: 042
  4. ZOFRAN [Concomitant]
     Indication: PREMEDICATION
     Route: 042

REACTIONS (6)
  - CONVULSION [None]
  - CONSCIOUSNESS FLUCTUATING [None]
  - URTICARIA [None]
  - COUGH [None]
  - RASH ERYTHEMATOUS [None]
  - RESPIRATORY DISTRESS [None]
